FAERS Safety Report 7463735-2 (Version None)
Quarter: 2011Q2

REPORT INFORMATION
  Report Type: 
  Country: None (occurrence: None)
  Receive Date: 20110506
  Receipt Date: 20110322
  Transmission Date: 20111010
  Serious: Yes (Hospitalization, Other)
  Sender: FDA-Public Use
  Company Number: US-BAYER-201038919NA

PATIENT
  Age: 20 Year
  Sex: Female
  Weight: 110.66 kg

DRUGS (1)
  1. YAZ [Suspect]
     Indication: DYSFUNCTIONAL UTERINE BLEEDING
     Dosage: UNK
     Route: 048
     Dates: start: 20070701, end: 20071001

REACTIONS (7)
  - PULMONARY INFARCTION [None]
  - ABDOMINAL PAIN [None]
  - BACK PAIN [None]
  - ANXIETY [None]
  - PULMONARY EMBOLISM [None]
  - NAUSEA [None]
  - CHEST PAIN [None]
